FAERS Safety Report 19846189 (Version 2)
Quarter: 2021Q3

REPORT INFORMATION
  Report Type: Spontaneous
  Country: TR (occurrence: TR)
  Receive Date: 20210917
  Receipt Date: 20210929
  Transmission Date: 20211014
  Serious: Yes (Other)
  Sender: FDA-Public Use
  Company Number: TR-GLAXOSMITHKLINE-TRCH2021064041

PATIENT
  Age: 52 Year
  Sex: Female

DRUGS (1)
  1. VOLTAREN [Suspect]
     Active Substance: DICLOFENAC SODIUM
     Indication: PAIN
     Dosage: 100 MG
     Route: 048

REACTIONS (7)
  - Suicide attempt [Unknown]
  - Renal pain [Not Recovered/Not Resolved]
  - Overdose [Unknown]
  - Tachycardia [Not Recovered/Not Resolved]
  - Suspected counterfeit product [Unknown]
  - Drug ineffective [Unknown]
  - Abdominal pain upper [Not Recovered/Not Resolved]

NARRATIVE: CASE EVENT DATE: 20210908
